FAERS Safety Report 13797227 (Version 2)
Quarter: 2017Q3

REPORT INFORMATION
  Report Type: Spontaneous
  Country: IT (occurrence: IT)
  Receive Date: 20170727
  Receipt Date: 20170829
  Transmission Date: 20171127
  Serious: Yes (Life-Threatening, Hospitalization)
  Sender: FDA-Public Use
  Company Number: IT-BIOGEN-2017BI00437287

PATIENT
  Sex: Female

DRUGS (1)
  1. TYSABRI [Suspect]
     Active Substance: NATALIZUMAB
     Indication: MULTIPLE SCLEROSIS
     Route: 065

REACTIONS (4)
  - Bone marrow failure [Unknown]
  - Pneumonia aspiration [Recovered/Resolved]
  - Neuromyelitis optica spectrum disorder [Unknown]
  - Gait inability [Not Recovered/Not Resolved]
